FAERS Safety Report 8834012 (Version 1)
Quarter: 2012Q4

REPORT INFORMATION
  Report Type: 
  Country: US (occurrence: US)
  Receive Date: 20121010
  Receipt Date: 20121010
  Transmission Date: 20130627
  Serious: Yes (Other)
  Sender: FDA-Public Use
  Company Number: PHHY2012US088294

PATIENT
  Age: 65 Year
  Sex: Male

DRUGS (6)
  1. ASCRIPTIN BUFFERED REG STRENGTH TABLETS [Suspect]
     Indication: HEADACHE
     Dosage: 81 mg, daily
     Route: 048
  2. ASCRIPTIN BUFFERED MAX STRENGTH CAPLETS [Suspect]
     Indication: HEADACHE
     Route: 048
  3. ACETYLSALICYLIC ACID [Suspect]
     Indication: HEADACHE
     Dosage: 81 mg, daily
     Route: 048
  4. LIPITOR [Concomitant]
  5. PLAVIX [Concomitant]
  6. RANITIDINE [Concomitant]

REACTIONS (3)
  - Neoplasm malignant [Recovered/Resolved]
  - Myocardial infarction [Recovered/Resolved]
  - Renal disorder [None]
